FAERS Safety Report 12412048 (Version 1)
Quarter: 2016Q2

REPORT INFORMATION
  Report Type: Spontaneous
  Country: GB (occurrence: GB)
  Receive Date: 20160527
  Receipt Date: 20160527
  Transmission Date: 20160815
  Serious: Yes (Disabling)
  Sender: FDA-Public Use
  Company Number: GB-PFIZER INC-2016274194

PATIENT
  Age: 34 Year
  Sex: Male
  Weight: 79 kg

DRUGS (3)
  1. ANUGESIC HC [Concomitant]
     Dosage: 1 DF, UNK
     Dates: start: 20150729
  2. ISPAGHULA EXTRACT\PSYLLIUM [Concomitant]
     Active Substance: PLANTAGO OVATA SEED\PLANTAGO SEED
     Dosage: 1 DF, 1X/DAY
     Dates: start: 20151120
  3. SILDENAFIL CITRATE. [Suspect]
     Active Substance: SILDENAFIL CITRATE
     Dosage: UNK
     Dates: start: 20160516

REACTIONS (2)
  - Tinnitus [Unknown]
  - Deafness [Recovering/Resolving]

NARRATIVE: CASE EVENT DATE: 20160516
